FAERS Safety Report 9528530 (Version 1)
Quarter: 2013Q1

REPORT INFORMATION
  Report Type: Spontaneous
  Country: US (occurrence: None)
  Receive Date: 20130314
  Receipt Date: 20130314
  Transmission Date: 20140127
  Serious: No
  Sender: FDA-Public Use
  Company Number: 1301USA008684

PATIENT
  Age: 54 Year
  Sex: Female

DRUGS (3)
  1. PEGINTRON [Suspect]
     Indication: HEPATITIS C
     Dosage: 0.5 CC
  2. RIBAVIRIN [Suspect]
     Indication: HEPATITIS C
     Dates: start: 20121114
  3. VICTRELIS [Suspect]
     Indication: HEPATITIS C
     Dates: start: 20121212

REACTIONS (6)
  - Anaemia [None]
  - Somnolence [None]
  - Pruritus [None]
  - Diarrhoea [None]
  - Dry skin [None]
  - Malaise [None]
